FAERS Safety Report 8060637-8 (Version None)
Quarter: 2012Q1

REPORT INFORMATION
  Report Type: 
  Country: None (occurrence: None)
  Receive Date: 20120120
  Receipt Date: 20120117
  Transmission Date: 20120608
  Serious: Yes (Hospitalization, Congenital Anomaly, Other)
  Sender: FDA-Public Use
  Company Number: US-PFIZER INC-2011105725

PATIENT
  Sex: Male
  Weight: 2 kg

DRUGS (9)
  1. ACTIGALL [Concomitant]
     Dosage: UNK
     Route: 064
     Dates: start: 20100309
  2. AMPICILLIN [Concomitant]
     Dosage: UNK
     Route: 064
     Dates: start: 20100105, end: 20100106
  3. BENADRYL [Concomitant]
     Dosage: UNK
     Route: 064
  4. TERBUTALINE [Concomitant]
     Dosage: UNK
     Route: 064
     Dates: start: 20100105, end: 20100214
  5. EFFEXOR [Suspect]
     Dosage: UNK
     Route: 064
  6. AMBIEN [Concomitant]
     Dosage: AS NEEDED
     Route: 064
  7. FERROUS SULFATE [Concomitant]
     Dosage: UNK
     Route: 064
  8. PROCARDIA [Concomitant]
     Dosage: EVERY SIX HOURS
     Route: 064
     Dates: start: 20100210, end: 20100325
  9. BETAMETHASONE [Concomitant]
     Dosage: UNK
     Route: 064
     Dates: start: 20100105, end: 20100226

REACTIONS (27)
  - DOUBLE OUTLET RIGHT VENTRICLE [None]
  - NEONATAL RESPIRATORY DISTRESS SYNDROME [None]
  - PULMONARY OEDEMA [None]
  - DYSPHAGIA [None]
  - TRANSPOSITION OF THE GREAT VESSELS [None]
  - VENTRICULAR SEPTAL DEFECT [None]
  - ATELECTASIS NEONATAL [None]
  - MACROCEPHALY [None]
  - PREMATURE BABY [None]
  - CONGENITAL HYDRONEPHROSIS [None]
  - HYPOXIA [None]
  - FOETAL EXPOSURE DURING PREGNANCY [None]
  - HYPOPLASTIC LEFT HEART SYNDROME [None]
  - SEPSIS NEONATAL [None]
  - CARDIAC FAILURE CONGESTIVE [None]
  - HYPOTENSION [None]
  - COARCTATION OF THE AORTA [None]
  - DEVELOPMENTAL DELAY [None]
  - APNOEA [None]
  - ECZEMA [None]
  - AORTIC VALVE ATRESIA [None]
  - HYPERBILIRUBINAEMIA [None]
  - CARDIOMEGALY [None]
  - HEART DISEASE CONGENITAL [None]
  - ATRIAL SEPTAL DEFECT [None]
  - AORTIC STENOSIS [None]
  - PATENT DUCTUS ARTERIOSUS [None]
